FAERS Safety Report 24664569 (Version 2)
Quarter: 2024Q4

REPORT INFORMATION
  Report Type: Spontaneous
  Country: IT (occurrence: IT)
  Receive Date: 20241126
  Receipt Date: 20241224
  Transmission Date: 20250114
  Serious: Yes (Other)
  Sender: TEVA
  Company Number: None

PATIENT
  Age: 81 Year
  Sex: Female

DRUGS (2)
  1. LETROZOLE [Suspect]
     Active Substance: LETROZOLE
     Indication: Product used for unknown indication
     Dosage: THERAPY NEVER INTERRUPTED SINCE HE STARTED IT ON 10/17/2023
     Route: 048
     Dates: start: 20231017
  2. IBRANCE [Suspect]
     Active Substance: PALBOCICLIB
     Indication: Product used for unknown indication
     Dosage: FOR 21 DAYS THEN SUSPENSION FOR 7 DAYS
     Route: 048

REACTIONS (1)
  - Neutropenia [Recovered/Resolved]
